FAERS Safety Report 26207549 (Version 1)
Quarter: 2025Q4

REPORT INFORMATION
  Report Type: Spontaneous
  Country: US (occurrence: None)
  Receive Date: 20251224
  Receipt Date: 20251224
  Transmission Date: 20260118
  Serious: No
  Sender: FDA-CTU
  Company Number: None

PATIENT

DRUGS (2)
  1. IBUPROFEN [Suspect]
     Active Substance: IBUPROFEN
  2. VOLTAREN [Suspect]
     Active Substance: DICLOFENAC SODIUM

REACTIONS (1)
  - Treatment failure [None]

NARRATIVE: CASE EVENT DATE: 20251223
